FAERS Safety Report 8716720 (Version 3)
Quarter: 2012Q4

REPORT INFORMATION
  Report Type: 
  Country: US (occurrence: US)
  Receive Date: 20120810
  Receipt Date: 20121004
  Transmission Date: 20130627
  Serious: No
  Sender: FDA-Public Use
  Company Number: US-PFIZER INC-2012192126

PATIENT
  Age: 55 Year
  Sex: Male
  Weight: 90.7 kg

DRUGS (4)
  1. SUTENT [Suspect]
     Indication: RENAL CANCER
     Dosage: 50 mg, 1x/day (on a schedule of 4 weeks on treatment followed by 2 weeks off)
     Route: 048
     Dates: start: 201208
  2. ZOMETA [Concomitant]
     Dosage: UNK
     Dates: end: 20120907
  3. STOOL SOFTENER [Concomitant]
  4. IRON [Concomitant]

REACTIONS (10)
  - Dysgeusia [Unknown]
  - Gingival pain [Unknown]
  - Platelet count decreased [Unknown]
  - White blood cell count decreased [Unknown]
  - Alopecia [Unknown]
  - Weight increased [Unknown]
  - Temperature intolerance [Unknown]
  - Hair colour changes [Unknown]
  - Nasal discomfort [Unknown]
  - Proctalgia [Unknown]
